FAERS Safety Report 9186037 (Version 1)
Quarter: 2013Q1

REPORT INFORMATION
  Report Type: Spontaneous
  Country: US (occurrence: US)
  Receive Date: 20130325
  Receipt Date: 20130325
  Transmission Date: 20140127
  Serious: No
  Sender: FDA-Public Use
  Company Number: US-009507513-1303USA011589

PATIENT
  Age: 54 Year
  Sex: Female

DRUGS (1)
  1. NASONEX [Suspect]
     Indication: CHRONIC SINUSITIS
     Dosage: 50 MICROGRAM,2 SPRAYS IN EACH NOSTRIL ONCE DAILY
     Route: 045
     Dates: end: 2013

REACTIONS (2)
  - Nasal discomfort [Unknown]
  - Nasal ulcer [Unknown]
